FAERS Safety Report 5004160-3 (Version None)
Quarter: 2006Q2

REPORT INFORMATION
  Report Type: 
  Country: None (occurrence: None)
  Receive Date: 20060517
  Receipt Date: 20060509
  Transmission Date: 20061013
  Serious: Yes (Other)
  Sender: FDA-Public Use
  Company Number: PHRM2006FR01549

PATIENT
  Age: 69 Year
  Sex: Female

DRUGS (2)
  1. LESCOL [Suspect]
     Dosage: 80 MG, QD
     Route: 048
  2. ESOMEPRAZOLE MAGNESIUM [Concomitant]
     Route: 048

REACTIONS (3)
  - ARTHRALGIA [None]
  - BURSITIS [None]
  - MUSCLE RUPTURE [None]
